FAERS Safety Report 9641112 (Version 1)
Quarter: 2013Q4

REPORT INFORMATION
  Report Type: Report from Study
  Country: US (occurrence: US)
  Receive Date: 20131023
  Receipt Date: 20131023
  Transmission Date: 20140711
  Serious: No
  Sender: FDA-Public Use
  Company Number: US-ABBVIE-13P-163-1157047-00

PATIENT
  Age: 20 Year
  Sex: Female

DRUGS (5)
  1. LUPRON DEPOT [Suspect]
     Indication: ENDOMETRIOSIS
     Dates: start: 201303, end: 201308
  2. NORETHINDRONE ACETATE [Suspect]
     Indication: PRODUCT USED FOR UNKNOWN INDICATION
     Dates: start: 201303, end: 201305
  3. UNKNOWN MEDICATION [Concomitant]
     Indication: CONVULSION
  4. UNKNOWN MEDICATION [Concomitant]
     Indication: DEPRESSION
  5. UNKNOWN MEDICATION [Concomitant]
     Indication: INSOMNIA

REACTIONS (2)
  - Feeling cold [Not Recovered/Not Resolved]
  - Hot flush [Not Recovered/Not Resolved]
